FAERS Safety Report 5407539-0 (Version None)
Quarter: 2007Q3

REPORT INFORMATION
  Report Type: 
  Country: None (occurrence: None)
  Receive Date: 20070713
  Receipt Date: 20070427
  Transmission Date: 20080115
  Serious: No
  Sender: FDA-Public Use
  Company Number: 2007SP001545

PATIENT
  Age: 59 Year
  Sex: Female
  Weight: 81.6475 kg

DRUGS (8)
  1. LUNESTA [Suspect]
     Indication: INSOMNIA
     Dosage: 2 MG; HS; ORAL
     Route: 048
     Dates: start: 20070423
  2. CARDIZEM [Concomitant]
  3. ESTROGENS CONJUGATED [Concomitant]
  4. LISINOPRIL [Concomitant]
  5. LEVOTHYROXINE SODIUM [Concomitant]
  6. EFFEXOR [Concomitant]
  7. DIGITEK [Concomitant]
  8. ZETIA [Concomitant]

REACTIONS (1)
  - MIDDLE INSOMNIA [None]
